FAERS Safety Report 21940642 (Version 1)
Quarter: 2023Q1

REPORT INFORMATION
  Report Type: Spontaneous
  Country: BR (occurrence: BR)
  Receive Date: 20230201
  Receipt Date: 20230201
  Transmission Date: 20230418
  Serious: No
  Sender: FDA-Public Use
  Company Number: BR-EXELIXIS-CABO-22052185

PATIENT
  Sex: Female

DRUGS (1)
  1. CABOMETYX [Suspect]
     Active Substance: CABOZANTINIB S-MALATE
     Indication: Renal cell carcinoma
     Dosage: UNK

REACTIONS (4)
  - Ageusia [Unknown]
  - Skin disorder [Unknown]
  - Quality of life decreased [Unknown]
  - Alopecia [Unknown]
